FAERS Safety Report 25035894 (Version 1)
Quarter: 2025Q1

REPORT INFORMATION
  Report Type: Spontaneous
  Country: FR (occurrence: FR)
  Receive Date: 20250304
  Receipt Date: 20250304
  Transmission Date: 20250409
  Serious: Yes (Death, Disabling)
  Sender: ACCORD
  Company Number: None

PATIENT
  Age: 72 Year
  Sex: Male
  Weight: 64.5 kg

DRUGS (2)
  1. OXALIPLATIN [Suspect]
     Active Substance: OXALIPLATIN
     Indication: Oesophageal adenocarcinoma
     Dates: start: 20240723, end: 20241112
  2. OXALIPLATIN [Suspect]
     Active Substance: OXALIPLATIN
     Indication: Oesophageal adenocarcinoma
     Dates: start: 20241119, end: 20241119

REACTIONS (5)
  - Neuropathy peripheral [Not Recovered/Not Resolved]
  - Back pain [Not Recovered/Not Resolved]
  - Pyrexia [Not Recovered/Not Resolved]
  - Haematuria [Not Recovered/Not Resolved]
  - Autoimmune haemolytic anaemia [Fatal]

NARRATIVE: CASE EVENT DATE: 20240915
